FAERS Safety Report 20672162 (Version 1)
Quarter: 2022Q2

REPORT INFORMATION
  Report Type: Spontaneous
  Country: IE (occurrence: None)
  Receive Date: 20220405
  Receipt Date: 20220405
  Transmission Date: 20220721
  Serious: Yes (Life-Threatening)
  Sender: FDA-Public Use
  Company Number: IE-ROCHE-3064638

PATIENT
  Age: 14 Year
  Sex: Female

DRUGS (11)
  1. RIVOTRIL [Suspect]
     Active Substance: CLONAZEPAM
     Indication: Anxiety
     Route: 048
     Dates: start: 20200620, end: 20200627
  2. FLUOXETINE [Suspect]
     Active Substance: FLUOXETINE HYDROCHLORIDE
     Indication: Anxiety
     Dosage: 20 MG, DAILY (PROZAC CAPSULES 20 MG, TWO IN THE MORNING. (ON THAT DOSE FOR APPROX. 8 MONTHS))
     Route: 048
     Dates: start: 20200227, end: 20201101
  3. FLUOXETINE [Suspect]
     Active Substance: FLUOXETINE HYDROCHLORIDE
     Dosage: 20 MG, DAILY (FLUZAC 20 MG, TWO CAPSULES IN THE MORNING)
     Route: 048
  4. FLUOXETINE [Suspect]
     Active Substance: FLUOXETINE HYDROCHLORIDE
     Dosage: 20 MG, DAILY (PROZAMEL 20 MG, TWO CAPSULES IN THE MORNING)
     Route: 048
  5. ARIPIPRAZOLE [Concomitant]
     Active Substance: ARIPIPRAZOLE
  6. CONCERTA [Concomitant]
     Active Substance: METHYLPHENIDATE HYDROCHLORIDE
  7. MELATONIN [Concomitant]
     Active Substance: MELATONIN
  8. MEFENAMIC ACID [Concomitant]
     Active Substance: MEFENAMIC ACID
  9. OLANZAPINE [Concomitant]
     Active Substance: OLANZAPINE
  10. LISDEXAMFETAMINE DIMESYLATE [Concomitant]
     Active Substance: LISDEXAMFETAMINE DIMESYLATE
  11. ALTAVITA D3 [Concomitant]

REACTIONS (2)
  - Intentional self-injury [Not Recovered/Not Resolved]
  - Judgement impaired [Not Recovered/Not Resolved]

NARRATIVE: CASE EVENT DATE: 20200621
